FAERS Safety Report 22880636 (Version 2)
Quarter: 2024Q1

REPORT INFORMATION
  Report Type: Spontaneous
  Country: JP (occurrence: JP)
  Receive Date: 20230829
  Receipt Date: 20240229
  Transmission Date: 20240410
  Serious: Yes (Other)
  Sender: FDA-Public Use
  Company Number: JP-MSD-2308JPN002868J

PATIENT
  Age: 82 Year
  Sex: Male

DRUGS (2)
  1. KEYTRUDA [Suspect]
     Active Substance: PEMBROLIZUMAB
     Indication: Renal neoplasm
     Dosage: UNK
     Route: 041
  2. INLYTA [Concomitant]
     Active Substance: AXITINIB
     Indication: Renal neoplasm
     Dosage: UNK
     Route: 065

REACTIONS (1)
  - Aortic stenosis [Unknown]
